FAERS Safety Report 7024060-7 (Version None)
Quarter: 2010Q4

REPORT INFORMATION
  Report Type: 
  Country: None (occurrence: None)
  Receive Date: 20101001
  Receipt Date: 20100922
  Transmission Date: 20110411
  Serious: Yes (Hospitalization)
  Sender: FDA-Public Use
  Company Number: US-AMGEN-QUU437570

PATIENT
  Sex: Male
  Weight: 85.4 kg

DRUGS (14)
  1. ARANESP [Suspect]
     Indication: ANAEMIA OF MALIGNANT DISEASE
     Route: 058
     Dates: start: 20100419
  2. RITUXAN [Concomitant]
     Route: 042
     Dates: start: 20100208
  3. BENDAMUSTIN [Concomitant]
     Route: 042
  4. BENADRYL [Concomitant]
     Route: 042
  5. CYCLOSPORINE [Concomitant]
     Route: 048
     Dates: start: 20100604
  6. MEDROL [Concomitant]
     Route: 048
     Dates: start: 20100907
  7. CYTOXAN [Concomitant]
     Route: 048
     Dates: start: 20100909
  8. ZOCOR [Concomitant]
  9. ATIVAN [Concomitant]
  10. PRILOSEC [Concomitant]
  11. GLUCOPHAGE [Concomitant]
  12. SYNTHROID [Concomitant]
  13. PROSCAR [Concomitant]
  14. CENTRUM SILVER [Concomitant]

REACTIONS (2)
  - ANTI-ERYTHROPOIETIN ANTIBODY [None]
  - APLASIA PURE RED CELL [None]
